FAERS Safety Report 11580687 (Version 2)
Quarter: 2015Q4

REPORT INFORMATION
  Report Type: Spontaneous
  Country: CH (occurrence: CH)
  Receive Date: 20150930
  Receipt Date: 20151012
  Transmission Date: 20160304
  Serious: Yes (Other)
  Sender: FDA-Public Use
  Company Number: PHHY2015CH115815

PATIENT
  Sex: Female

DRUGS (2)
  1. EXEMESTANE. [Suspect]
     Active Substance: EXEMESTANE
     Indication: PRODUCT USED FOR UNKNOWN INDICATION
     Dosage: UNK
     Dates: start: 201401, end: 201405
  2. LETROZOLE SANDOZ [Suspect]
     Active Substance: LETROZOLE
     Indication: PRODUCT USED FOR UNKNOWN INDICATION
     Dosage: UNK
     Dates: start: 201409, end: 201501

REACTIONS (5)
  - Supraventricular extrasystoles [Unknown]
  - Disease progression [Unknown]
  - Folate deficiency [Unknown]
  - Neoplasm malignant [Unknown]
  - Hypertension [Unknown]
